FAERS Safety Report 21004101 (Version 1)
Quarter: 2022Q2

REPORT INFORMATION
  Report Type: Spontaneous
  Country: US (occurrence: None)
  Receive Date: 20220624
  Receipt Date: 20220624
  Transmission Date: 20220721
  Serious: No
  Sender: FDA-Public Use
  Company Number: 2022A217144

PATIENT
  Sex: Female

DRUGS (4)
  1. LYNPARZA [Suspect]
     Active Substance: OLAPARIB
     Indication: Invasive ductal breast carcinoma
     Route: 048
  2. LYNPARZA [Suspect]
     Active Substance: OLAPARIB
     Indication: Invasive ductal breast carcinoma
     Route: 048
  3. LYNPARZA [Suspect]
     Active Substance: OLAPARIB
     Indication: Invasive ductal breast carcinoma
     Dosage: HER DOSE TO 150 MG IN THE MORNING AND 300 MG AT NIGHT
     Route: 048
  4. LYNPARZA [Suspect]
     Active Substance: OLAPARIB
     Indication: Invasive ductal breast carcinoma
     Dosage: HER DOSE TO 150 MG IN THE MORNING AND 300 MG AT NIGHT
     Route: 048

REACTIONS (13)
  - Adverse drug reaction [Unknown]
  - Feeling abnormal [Unknown]
  - Malaise [Unknown]
  - Depression [Unknown]
  - Body dysmorphic disorder [Unknown]
  - Bone pain [Not Recovered/Not Resolved]
  - Pain [Not Recovered/Not Resolved]
  - Pain in extremity [Not Recovered/Not Resolved]
  - Joint injury [Not Recovered/Not Resolved]
  - Lethargy [Not Recovered/Not Resolved]
  - Arthralgia [Not Recovered/Not Resolved]
  - Blood pressure measurement [Unknown]
  - Fatigue [Not Recovered/Not Resolved]
